FAERS Safety Report 15203811 (Version 1)
Quarter: 2018Q3

REPORT INFORMATION
  Report Type: Other
  Country: GB (occurrence: GB)
  Receive Date: 20180726
  Receipt Date: 20180726
  Transmission Date: 20181010
  Serious: Yes (Death)
  Sender: FDA-Public Use
  Company Number: GB-RARE DISEASE THERAPEUTICS, INC.-2052779

PATIENT
  Age: 52 Year
  Sex: Female

DRUGS (1)
  1. PURIXAN [Suspect]
     Active Substance: MERCAPTOPURINE
     Indication: COLITIS
     Route: 048
     Dates: start: 20180416, end: 20180524

REACTIONS (4)
  - Escherichia sepsis [Not Recovered/Not Resolved]
  - Pancytopenia [Fatal]
  - Off label use [None]
  - Renal abscess [Not Recovered/Not Resolved]

NARRATIVE: CASE EVENT DATE: 20180416
